FAERS Safety Report 4408458-9 (Version None)
Quarter: 2004Q3

REPORT INFORMATION
  Report Type: 
  Country: None (occurrence: None)
  Receive Date: 20040726
  Receipt Date: 20040713
  Transmission Date: 20050211
  Serious: Yes (Hospitalization)
  Sender: FDA-Public Use
  Company Number: 2004UW13634

PATIENT
  Age: 45 Year
  Sex: Male

DRUGS (3)
  1. CRESTOR [Suspect]
  2. EFFEXOR [Suspect]
  3. SEROQUEL [Concomitant]

REACTIONS (3)
  - HEAT STROKE [None]
  - RENAL FAILURE [None]
  - RHABDOMYOLYSIS [None]
